FAERS Safety Report 6772157-9 (Version None)
Quarter: 2010Q2

REPORT INFORMATION
  Report Type: 
  Country: None (occurrence: None)
  Receive Date: 20100616
  Receipt Date: 20100422
  Transmission Date: 20101027
  Serious: No
  Sender: FDA-Public Use
  Company Number: US-ASTRAZENECA-2010SE18147

PATIENT
  Age: 29057 Day
  Sex: Female
  Weight: 86.2 kg

DRUGS (7)
  1. PULMICORT FLEXAHALER [Suspect]
     Indication: CHRONIC OBSTRUCTIVE PULMONARY DISEASE
     Dosage: 1 PUFF BID
     Route: 055
     Dates: start: 20100419
  2. PREDNISONE [Concomitant]
  3. CHLOR-TRIMETON [Concomitant]
  4. TRIAMTERENE [Concomitant]
  5. LISINOPRIL [Concomitant]
  6. PREMARIN [Concomitant]
  7. HYDROCODONE BITARTRATE [Concomitant]

REACTIONS (5)
  - COUGH [None]
  - DRUG INEFFECTIVE [None]
  - DRY THROAT [None]
  - PULMONARY CONGESTION [None]
  - THROAT IRRITATION [None]
